FAERS Safety Report 16441336 (Version 1)
Quarter: 2019Q2

REPORT INFORMATION
  Report Type: Spontaneous
  Country: US (occurrence: US)
  Receive Date: 20190617
  Receipt Date: 20190617
  Transmission Date: 20190711
  Serious: No
  Sender: FDA-Public Use
  Company Number: US-IMPAX LABORATORIES, LLC-2018-IPXL-02822

PATIENT
  Sex: Female

DRUGS (1)
  1. PYRIDOSTIGMINE BROMIDE. [Suspect]
     Active Substance: PYRIDOSTIGMINE BROMIDE
     Indication: PRODUCT USED FOR UNKNOWN INDICATION
     Dosage: 60MG, 1.5 TABLETS, THREE TIMES DAILY
     Route: 048
     Dates: start: 2017

REACTIONS (2)
  - Product physical issue [Unknown]
  - Taste disorder [Unknown]

NARRATIVE: CASE EVENT DATE: 2018
